FAERS Safety Report 18270958 (Version 2)
Quarter: 2022Q3

REPORT INFORMATION
  Report Type: Spontaneous
  Country: JP (occurrence: JP)
  Receive Date: 20200916
  Receipt Date: 20220713
  Transmission Date: 20221026
  Serious: Yes (Other)
  Sender: FDA-Public Use
  Company Number: JP-GSKNCCC-CASE-01031880_AE-34021

PATIENT

DRUGS (1)
  1. DUTASTERIDE [Suspect]
     Active Substance: DUTASTERIDE
     Indication: Benign prostatic hyperplasia
     Dosage: 1 DF, QD
     Route: 048

REACTIONS (3)
  - Foreign body in throat [Recovered/Resolved]
  - Dysphagia [Unknown]
  - Oropharyngeal pain [Recovered/Resolved]
